FAERS Safety Report 8901843 (Version 4)
Quarter: 2013Q1

REPORT INFORMATION
  Report Type: Spontaneous
  Country: US (occurrence: None)
  Receive Date: 20121107
  Receipt Date: 20130122
  Transmission Date: 20140127
  Serious: Yes (Life-Threatening, Hospitalization, Other)
  Sender: FDA-Public Use
  Company Number: ZYD-12-AE-230

PATIENT
  Sex: Female

DRUGS (9)
  1. RIBAVIRIN [Suspect]
     Indication: HEPATITIS C
     Route: 048
     Dates: start: 201107, end: 201201
  2. PEGINTERFERON [Suspect]
     Indication: HEPATITIS C
     Route: 058
     Dates: start: 201107, end: 201201
  3. OMEPRAZOLE 40MG [Concomitant]
  4. FERROUS SULFATE 975MG [Concomitant]
  5. RANITIDINE 300MG [Concomitant]
  6. KLONOPIN [Concomitant]
  7. OXYCODONE [Concomitant]
  8. MIRALAX [Concomitant]
  9. PHENERGAN [Concomitant]

REACTIONS (29)
  - Maternal exposure during pregnancy [None]
  - Pregnancy [None]
  - Migraine [None]
  - Melaena [None]
  - Anaemia [None]
  - Swelling [None]
  - Blood pressure increased [None]
  - Brain oedema [None]
  - Atelectasis [None]
  - Pneumothorax [None]
  - Respiratory failure [None]
  - Amniotic fluid volume decreased [None]
  - Pre-eclampsia [None]
  - Drug screen positive [None]
  - Pleural effusion [None]
  - Caesarean section [None]
  - Ascites [None]
  - Acute sinusitis [None]
  - Neutrophil count increased [None]
  - Lymphocyte percentage decreased [None]
  - Protein urine present [None]
  - Head injury [None]
  - Headache [None]
  - Peripancreatic fluid collection [None]
  - Lung consolidation [None]
  - Monocyte percentage decreased [None]
  - Creatinine renal clearance decreased [None]
  - Protein urine present [None]
  - Premature delivery [None]
